FAERS Safety Report 21076158 (Version 2)
Quarter: 2022Q3

REPORT INFORMATION
  Report Type: Spontaneous
  Country: ID (occurrence: ID)
  Receive Date: 20220713
  Receipt Date: 20220715
  Transmission Date: 20221026
  Serious: Yes (Death, Other)
  Sender: FDA-Public Use
  Company Number: ID-PFIZER INC-PV202200020809

PATIENT
  Sex: Female

DRUGS (2)
  1. CYTOTEC [Suspect]
     Active Substance: MISOPROSTOL
     Indication: Abortion
     Dosage: 200 UG
  2. DIFLUCAN [Concomitant]
     Active Substance: FLUCONAZOLE
     Dosage: 150 MG

REACTIONS (3)
  - Death [Fatal]
  - Drug abuse [Unknown]
  - Off label use [Unknown]
